FAERS Safety Report 24693623 (Version 1)
Quarter: 2024Q4

REPORT INFORMATION
  Report Type: Spontaneous
  Country: US (occurrence: US)
  Receive Date: 20241204
  Receipt Date: 20241204
  Transmission Date: 20250114
  Serious: No
  Sender: ROCHE
  Company Number: US-ROCHE-10000142611

PATIENT
  Age: 58 Year
  Sex: Female
  Weight: 112.03 kg

DRUGS (5)
  1. XOLAIR [Suspect]
     Active Substance: OMALIZUMAB
     Indication: Autoimmune disorder
     Route: 065
     Dates: start: 202404
  2. PREDNISONE [Concomitant]
     Active Substance: PREDNISONE
     Indication: Product used for unknown indication
     Dosage: FOR ONE WEEK
     Dates: start: 2024, end: 2024
  3. PREDNISONE [Concomitant]
     Active Substance: PREDNISONE
     Dates: start: 2024, end: 2024
  4. PREDNISONE [Concomitant]
     Active Substance: PREDNISONE
     Dosage: FOR ONE WEEK
     Dates: start: 2024, end: 2024
  5. VICTOZA [Concomitant]
     Active Substance: LIRAGLUTIDE
     Indication: Weight decreased

REACTIONS (5)
  - Product dose omission issue [Unknown]
  - Off label use [Unknown]
  - Device issue [Unknown]
  - Device defective [Unknown]
  - No adverse event [Unknown]

NARRATIVE: CASE EVENT DATE: 20241124
